FAERS Safety Report 7236850-6 (Version None)
Quarter: 2011Q1

REPORT INFORMATION
  Report Type: 
  Country: None (occurrence: None)
  Receive Date: 20110120
  Receipt Date: 20110114
  Transmission Date: 20110831
  Serious: Yes (Other)
  Sender: FDA-Public Use
  Company Number: US-RB-013052-10

PATIENT
  Age: 28 Year
  Sex: Male

DRUGS (3)
  1. SUBOXONE [Suspect]
     Route: 060
     Dates: start: 20100701, end: 20101001
  2. SUBOXONE [Suspect]
     Indication: DRUG DEPENDENCE
     Route: 060
     Dates: start: 20101001, end: 20101201
  3. SUBOXONE [Suspect]
     Route: 060
     Dates: start: 20101201

REACTIONS (16)
  - ANXIETY [None]
  - DRUG WITHDRAWAL SYNDROME [None]
  - RESTLESSNESS [None]
  - TREMOR [None]
  - PYREXIA [None]
  - WEIGHT DECREASED [None]
  - LETHARGY [None]
  - DYSPNOEA [None]
  - CONVULSION [None]
  - HYPOGLYCAEMIA [None]
  - FALL [None]
  - DECREASED APPETITE [None]
  - FEELING ABNORMAL [None]
  - RESTLESS LEGS SYNDROME [None]
  - PANIC ATTACK [None]
  - CONTUSION [None]
